FAERS Safety Report 19015801 (Version 1)
Quarter: 2021Q1

REPORT INFORMATION
  Report Type: Spontaneous
  Country: US (occurrence: US)
  Receive Date: 20210316
  Receipt Date: 20210316
  Transmission Date: 20210420
  Serious: No
  Sender: FDA-Public Use
  Company Number: US-SA-2021SA075929

PATIENT
  Sex: Male

DRUGS (3)
  1. SOLIQUA 100/33 [Suspect]
     Active Substance: INSULIN GLARGINE\LIXISENATIDE
     Dosage: UNK
     Route: 065
  2. GLYXAMBI [Suspect]
     Active Substance: EMPAGLIFLOZIN\LINAGLIPTIN
     Dosage: UNK
  3. OZEMPIC [Suspect]
     Active Substance: SEMAGLUTIDE
     Dosage: UNK

REACTIONS (1)
  - Abdominal discomfort [Unknown]
